FAERS Safety Report 14268735 (Version 1)
Quarter: 2017Q4

REPORT INFORMATION
  Report Type: Spontaneous
  Country: US (occurrence: US)
  Receive Date: 20171211
  Receipt Date: 20171211
  Transmission Date: 20180321
  Serious: No
  Sender: FDA-Public Use
  Company Number: US-JNJFOC-20171127026

PATIENT
  Age: 75 Year
  Sex: Female
  Weight: 77.11 kg

DRUGS (2)
  1. ZYRTEC [Suspect]
     Active Substance: CETIRIZINE HYDROCHLORIDE
     Route: 065
  2. ZYRTEC [Suspect]
     Active Substance: CETIRIZINE HYDROCHLORIDE
     Indication: MULTIPLE ALLERGIES
     Dosage: ONCE IN AM AND ONCE IN PM PER DOCTORS ORDERS
     Route: 065

REACTIONS (5)
  - Pain in extremity [Unknown]
  - Product package associated injury [Unknown]
  - Off label use [Unknown]
  - Overdose [Unknown]
  - Product packaging issue [Unknown]
